FAERS Safety Report 8371352 (Version 6)
Quarter: 2012Q4

REPORT INFORMATION
  Report Type: 
  Country: US (occurrence: US)
  Receive Date: 20120130
  Receipt Date: 20120907
  Transmission Date: 20130627
  Serious: Yes (Hospitalization, Disabling, Other)
  Sender: FDA-Public Use
  Company Number: US-009507513-1201USA03705

PATIENT

DRUGS (10)
  1. FOSAMAX [Suspect]
     Indication: OSTEOPOROSIS
     Dosage: 70 mg, QW
     Route: 048
     Dates: start: 20010227, end: 200804
  2. FOSAMAX [Suspect]
     Dosage: 10 mg, qd
     Route: 048
  3. FOSAMAX [Suspect]
     Indication: OSTEOPOROSIS
     Dosage: 70 mg, QW
     Route: 048
     Dates: start: 20080411, end: 201005
  4. MK-0966 [Concomitant]
     Indication: BURSITIS
     Dosage: 12.5-25
     Route: 048
     Dates: start: 20010110
  5. CLARITIN [Concomitant]
     Indication: RHINITIS ALLERGIC
     Dosage: 10 mg, qd
     Route: 048
  6. ZYRTEC [Concomitant]
     Indication: RHINITIS ALLERGIC
     Dosage: 10 mg, qd
     Route: 048
     Dates: start: 20021206
  7. PREMARIN [Concomitant]
     Dosage: 0.625 mg, qd
  8. CALCIUM (UNSPECIFIED) [Concomitant]
     Dosage: UNK UNK, tid
  9. MEPROBAMATE [Concomitant]
     Dosage: 400 mg, bid
  10. CLARINEX (DESLORATADINE) [Concomitant]

REACTIONS (37)
  - Femur fracture [Not Recovered/Not Resolved]
  - Femur fracture [Not Recovered/Not Resolved]
  - Fracture nonunion [Not Recovered/Not Resolved]
  - Low turnover osteopathy [Not Recovered/Not Resolved]
  - Device failure [Unknown]
  - Haemorrhagic anaemia [Unknown]
  - Head injury [Unknown]
  - Loss of consciousness [Unknown]
  - Deafness [Unknown]
  - Heparin-induced thrombocytopenia [Unknown]
  - Osteopenia [Unknown]
  - Hypothyroidism [Unknown]
  - Adverse event [Unknown]
  - Urinary incontinence [Not Recovered/Not Resolved]
  - Osteoarthritis [Unknown]
  - Conjunctivitis [Unknown]
  - Anxiety [Unknown]
  - Depression [Unknown]
  - Spinal osteoarthritis [Not Recovered/Not Resolved]
  - Spondylolisthesis [Not Recovered/Not Resolved]
  - Urinary tract infection [Unknown]
  - Hypertension [Recovered/Resolved]
  - Thyroid neoplasm [Unknown]
  - Carpal tunnel syndrome [Unknown]
  - Osteoarthritis [Unknown]
  - Neuropathy peripheral [Not Recovered/Not Resolved]
  - Arthropathy [Unknown]
  - Urinary tract infection [Recovered/Resolved]
  - Pain [Unknown]
  - Oedema [Unknown]
  - Benign neoplasm of skin [Not Recovered/Not Resolved]
  - Upper respiratory tract infection [Unknown]
  - Asymptomatic bacteriuria [Unknown]
  - Fall [Unknown]
  - Arthralgia [Unknown]
  - Pain in extremity [Unknown]
  - Drug ineffective [Unknown]
